FAERS Safety Report 20518257 (Version 1)
Quarter: 2022Q1

REPORT INFORMATION
  Report Type: Spontaneous
  Country: FR (occurrence: FR)
  Receive Date: 20220225
  Receipt Date: 20220225
  Transmission Date: 20220423
  Serious: Yes (Other)
  Sender: FDA-Public Use
  Company Number: None

PATIENT
  Age: 55 Year
  Sex: Male
  Weight: 90 kg

DRUGS (1)
  1. METFORMIN [Suspect]
     Active Substance: METFORMIN HYDROCHLORIDE
     Indication: Diabetes mellitus
     Dosage: METFORMIN TEVA 1000 MG FILM-COATED TABLETS, UNIT DOSE: 3 GRAM
     Route: 048
     Dates: start: 202201

REACTIONS (2)
  - Choking [Recovered/Resolved]
  - Product dosage form issue [Recovered/Resolved]

NARRATIVE: CASE EVENT DATE: 20220105
